FAERS Safety Report 5894484-X (Version None)
Quarter: 2008Q3

REPORT INFORMATION
  Report Type: 
  Country: None (occurrence: None)
  Receive Date: 20080922
  Receipt Date: 20080908
  Transmission Date: 20090109
  Serious: Yes (Other)
  Sender: FDA-Public Use
  Company Number: DSA_31058_2007

PATIENT
  Sex: Female

DRUGS (43)
  1. CARDIZEM CD [Suspect]
     Indication: HYPERTENSION
     Dosage: 180 MG QD ORAL
     Route: 048
     Dates: start: 19930101, end: 20080201
  2. ATENOL [Concomitant]
  3. HYDROCHLOROTHIAZIDE [Concomitant]
  4. TRAZODONE HCL [Concomitant]
  5. PAXIL [Concomitant]
  6. AMBIEN [Concomitant]
  7. LORCET-HD [Concomitant]
  8. XANAX [Concomitant]
  9. PENICILLIN VK [Concomitant]
  10. ACETASOL HC [Concomitant]
  11. ALUMINUM C1 SOL [Concomitant]
  12. ZOVAIRAX [Concomitant]
  13. CORTIMOXAZOLE [Concomitant]
  14. TERCONAZOLE [Concomitant]
  15. METRONIDAZOLE [Concomitant]
  16. ACETAMINOPHEN AND HYDROCODONE BITARTRATE [Concomitant]
  17. PRAVACHOL [Concomitant]
  18. PRAVASTATIN [Concomitant]
  19. LUNESTA [Concomitant]
  20. LEXAPRO [Concomitant]
  21. BUPROPION HCL [Concomitant]
  22. DRYSOL [Concomitant]
  23. CLARINEX [Concomitant]
  24. HYDROQUINONE [Concomitant]
  25. TENORMIN [Concomitant]
  26. AVALIDE [Concomitant]
  27. BUPROPION HCL [Concomitant]
  28. DOXYCYCLINE [Concomitant]
  29. PROMETHAZINE [Concomitant]
  30. CLOTRIMAZOLE [Concomitant]
  31. HYDROQUINONE [Concomitant]
  32. MYTUSSIN [Concomitant]
  33. TRAMADOL HCL [Concomitant]
  34. TRIAMCINOLONE [Concomitant]
  35. NORVASC [Concomitant]
  36. TAGAMET /00397402/ [Concomitant]
  37. TYLENOL /000200001/ [Concomitant]
  38. ALLEGRA [Concomitant]
  39. ZYRTEC [Concomitant]
  40. NASACORT [Concomitant]
  41. MUCINEX [Concomitant]
  42. NEXIUM [Concomitant]
  43. PRILOSEC [Concomitant]

REACTIONS (54)
  - ABDOMINAL PAIN LOWER [None]
  - ACNE [None]
  - ARTHROPOD BITE [None]
  - BACK PAIN [None]
  - BLOOD CHOLESTEROL INCREASED [None]
  - BLOOD TRIGLYCERIDES INCREASED [None]
  - BRONCHITIS [None]
  - CARDIOMEGALY [None]
  - CAROTID BRUIT [None]
  - CARPAL TUNNEL SYNDROME [None]
  - CELLULITIS [None]
  - CHEST PAIN [None]
  - CONSTIPATION [None]
  - CONVULSION [None]
  - COUGH [None]
  - DYSPEPSIA [None]
  - ECCHYMOSIS [None]
  - ECZEMA [None]
  - ELECTROCARDIOGRAM T WAVE ABNORMAL [None]
  - FATIGUE [None]
  - FUNGAL INFECTION [None]
  - GASTROOESOPHAGEAL REFLUX DISEASE [None]
  - GENERAL PHYSICAL HEALTH DETERIORATION [None]
  - GINGIVAL HYPERPLASIA [None]
  - GINGIVITIS [None]
  - HAEMATOCHEZIA [None]
  - HAEMOPTYSIS [None]
  - HERPES SIMPLEX [None]
  - HYPERHIDROSIS [None]
  - INSOMNIA [None]
  - LARYNGEAL OEDEMA [None]
  - LYMPHADENOPATHY [None]
  - MENORRHAGIA [None]
  - MOOD SWINGS [None]
  - MUSCLE SPASMS [None]
  - NAUSEA [None]
  - NERVOUSNESS [None]
  - OCULAR ICTERUS [None]
  - OSTEOPENIA [None]
  - PAIN IN EXTREMITY [None]
  - PALPITATIONS [None]
  - PERIODONTITIS [None]
  - PHARYNGEAL INFLAMMATION [None]
  - PHARYNGEAL LEUKOPLAKIA [None]
  - POLLAKIURIA [None]
  - POST INFLAMMATORY PIGMENTATION CHANGE [None]
  - RASH [None]
  - RESPIRATION ABNORMAL [None]
  - ROAD TRAFFIC ACCIDENT [None]
  - SINUS DISORDER [None]
  - UTERINE LEIOMYOMA [None]
  - VOCAL CORD DISORDER [None]
  - VOMITING [None]
  - WEIGHT INCREASED [None]
